FAERS Safety Report 23118164 (Version 1)
Quarter: 2023Q4

REPORT INFORMATION
  Report Type: Spontaneous
  Country: CA (occurrence: CA)
  Receive Date: 20231027
  Receipt Date: 20231027
  Transmission Date: 20240110
  Serious: Yes (Hospitalization, Other)
  Sender: FDA-Public Use
  Company Number: CA-SANDOZ-SDZ2023CA047049

PATIENT
  Age: 84 Year
  Sex: Female

DRUGS (2)
  1. NITROGLYCERIN [Suspect]
     Active Substance: NITROGLYCERIN
     Indication: Atrial fibrillation
     Dosage: 0.4 MG, 1 EVERY 1 HOUR
     Route: 062
  2. INSULIN NOS [Concomitant]
     Active Substance: INSULIN NOS
     Indication: Product used for unknown indication
     Dosage: (GLOBULES ORAL)
     Route: 065

REACTIONS (6)
  - Abdominal pain upper [Recovered/Resolved]
  - Atrial fibrillation [Recovered/Resolved]
  - Dementia [Recovered/Resolved]
  - Incorrect dose administered [Recovered/Resolved]
  - Myocardial infarction [Recovered/Resolved]
  - Pneumonia [Recovered/Resolved]
